FAERS Safety Report 17020479 (Version 1)
Quarter: 2019Q4

REPORT INFORMATION
  Report Type: Report from Study
  Country: US (occurrence: US)
  Receive Date: 20191112
  Receipt Date: 20191112
  Transmission Date: 20200122
  Serious: Yes (Other)
  Sender: FDA-Public Use
  Company Number: NVSC2019US030168

PATIENT
  Age: 23 Year
  Sex: Female
  Weight: 79.38 kg

DRUGS (1)
  1. GILENYA [Suspect]
     Active Substance: FINGOLIMOD HYDROCHLORIDE
     Indication: PRODUCT USED FOR UNKNOWN INDICATION
     Dosage: 0.5 MG, QD
     Route: 048
     Dates: start: 20191017

REACTIONS (3)
  - Product dose omission [Unknown]
  - Palpitations [Unknown]
  - Respiratory distress [Unknown]

NARRATIVE: CASE EVENT DATE: 20191103
